FAERS Safety Report 16095871 (Version 1)
Quarter: 2019Q2

REPORT INFORMATION
  Report Type: Spontaneous
  Country: US (occurrence: US)
  Receive Date: 20190320
  Receipt Date: 20190320
  Transmission Date: 20190711
  Serious: No
  Sender: FDA-Public Use
  Company Number: None

PATIENT
  Age: 29 Year
  Sex: Female
  Weight: 114.53 kg

DRUGS (8)
  1. HYDROCHLOROTHYAZIDE [Concomitant]
     Active Substance: HYDROCHLOROTHIAZIDE
  2. INDOMETHACIN. [Concomitant]
     Active Substance: INDOMETHACIN
  3. GARDEN OF LIFE DAILY PRENATAL VITAMIN, [Concomitant]
  4. AMLODIPINE [Concomitant]
     Active Substance: AMLODIPINE BESYLATE
  5. SPIRONOLACTONE. [Concomitant]
     Active Substance: SPIRONOLACTONE
  6. CHELATED MAGNESIUM [Concomitant]
  7. PARAGARD T 380A [Suspect]
     Active Substance: COPPER
  8. KLEAN ATHLETE PRIOBIOTIC, [Concomitant]

REACTIONS (7)
  - Pain [None]
  - Heart rate decreased [None]
  - Movement disorder [None]
  - Muscle spasms [None]
  - Vomiting [None]
  - Chills [None]
  - Sensation of foreign body [None]

NARRATIVE: CASE EVENT DATE: 20190319
